FAERS Safety Report 9914310 (Version 2)
Quarter: 2014Q1

REPORT INFORMATION
  Report Type: Spontaneous
  Country: US (occurrence: US)
  Receive Date: 20140220
  Receipt Date: 20140220
  Transmission Date: 20141002
  Serious: Yes (Other)
  Sender: FDA-Public Use
  Company Number: US-GE HEALTHCARE MEDICAL DIAGNOSTICS-OSCN-PR-0810S-0590

PATIENT
  Age: 50 Year
  Sex: Male

DRUGS (9)
  1. OMNISCAN [Suspect]
     Indication: PRODUCT USED FOR UNKNOWN INDICATION
     Route: 042
     Dates: start: 20060221, end: 20060221
  2. OMNISCAN [Suspect]
     Route: 042
     Dates: start: 20060225, end: 20060225
  3. OMNISCAN [Suspect]
     Route: 042
     Dates: start: 20060306, end: 20060306
  4. OMNISCAN [Suspect]
     Route: 042
     Dates: start: 20060327, end: 20060327
  5. OMNISCAN [Suspect]
     Route: 042
     Dates: start: 20060330, end: 20060330
  6. OMNISCAN [Suspect]
     Route: 042
     Dates: start: 20060828, end: 20060828
  7. OMNISCAN [Suspect]
     Route: 042
     Dates: start: 20070303, end: 20070303
  8. XANAX [Concomitant]
  9. PLAQUENIL [Concomitant]

REACTIONS (1)
  - Nephrogenic systemic fibrosis [Not Recovered/Not Resolved]
